FAERS Safety Report 8331955-0 (Version None)
Quarter: 2012Q2

REPORT INFORMATION
  Report Type: 
  Country: None (occurrence: None)
  Receive Date: 20120502
  Receipt Date: 20120425
  Transmission Date: 20120825
  Serious: No
  Sender: FDA-Public Use
  Company Number: US-AMGEN-USASP2012026198

PATIENT
  Age: 78 Year
  Sex: Male

DRUGS (1)
  1. ENBREL [Suspect]
     Indication: PRODUCT USED FOR UNKNOWN INDICATION
     Dosage: 50 MG, QWK
     Dates: start: 20071201, end: 20120401

REACTIONS (6)
  - MALAISE [None]
  - INFECTION [None]
  - RESPIRATORY DISORDER [None]
  - INCREASED UPPER AIRWAY SECRETION [None]
  - UPPER RESPIRATORY TRACT CONGESTION [None]
  - CHEST DISCOMFORT [None]
